FAERS Safety Report 23535925 (Version 3)
Quarter: 2024Q1

REPORT INFORMATION
  Report Type: Report from Study
  Country: US (occurrence: US)
  Receive Date: 20240219
  Receipt Date: 20240304
  Transmission Date: 20240410
  Serious: Yes (Hospitalization, Other)
  Sender: FDA-Public Use
  Company Number: US-002147023-NVSC2023US159932

PATIENT
  Age: 59 Year
  Sex: Male
  Weight: 88.7 kg

DRUGS (16)
  1. LAMPRENE [Suspect]
     Active Substance: CLOFAZIMINE
     Indication: Mycobacterium abscessus infection
     Dosage: 100 MG, QD
     Route: 048
     Dates: start: 20230529
  2. LAMPRENE [Suspect]
     Active Substance: CLOFAZIMINE
     Indication: Soft tissue infection
     Dosage: 100 MG, QD
     Route: 048
  3. LAMPRENE [Suspect]
     Active Substance: CLOFAZIMINE
     Indication: Abdominal wall infection
     Dosage: 100 MG
     Route: 048
     Dates: start: 20230628, end: 20240220
  4. LAMPRENE [Suspect]
     Active Substance: CLOFAZIMINE
     Dosage: 100 MG, QD
     Route: 048
     Dates: start: 20230712
  5. LAMPRENE [Suspect]
     Active Substance: CLOFAZIMINE
     Dosage: 100 MG (LAST DOSE PRIOR TO AE)
     Route: 048
     Dates: start: 20230919
  6. LAMPRENE [Suspect]
     Active Substance: CLOFAZIMINE
     Dosage: 100 MG, QD (DOSE LAST TAKEN PRIOR TO ADVERSE EVENT)
     Route: 048
     Dates: start: 20231010
  7. CEFOXITIN [Suspect]
     Active Substance: CEFOXITIN SODIUM
     Indication: Mycobacterium abscessus infection
     Dosage: 3 G, Q8H
     Route: 042
     Dates: start: 20230609, end: 20230919
  8. AMIKACIN [Suspect]
     Active Substance: AMIKACIN
     Indication: Mycobacterium abscessus infection
     Dosage: 1500 MG, TIW
     Route: 042
     Dates: start: 20230523, end: 20230919
  9. AMIKACIN [Suspect]
     Active Substance: AMIKACIN
     Dosage: 1500 MG, TIW
     Route: 042
     Dates: end: 20231010
  10. OMADACYCLINE [Concomitant]
     Active Substance: OMADACYCLINE
     Indication: Mycobacterium abscessus infection
     Dosage: 300 MG
     Route: 048
     Dates: start: 20230818, end: 20230919
  11. INSULIN DETEMIR [Concomitant]
     Active Substance: INSULIN DETEMIR
     Indication: Product used for unknown indication
     Dosage: 20 U, QD
     Route: 058
  12. INSULIN ASPART [Concomitant]
     Active Substance: INSULIN ASPART
     Indication: Product used for unknown indication
     Dosage: UNK, QD (SLIDING SCALE)
     Route: 058
  13. LEVOTHYROXINE [Concomitant]
     Active Substance: LEVOTHYROXINE\LEVOTHYROXINE SODIUM
     Indication: Product used for unknown indication
     Dosage: 100 UG (MCG), QD
     Route: 048
  14. IMIPENEM [Concomitant]
     Active Substance: IMIPENEM
     Indication: Product used for unknown indication
     Dosage: UNK
     Route: 065
  15. FAMOTIDINE [Concomitant]
     Active Substance: FAMOTIDINE
     Indication: Product used for unknown indication
     Dosage: 20 MG, QD
     Route: 048
  16. INSULIN NOS [Concomitant]
     Active Substance: INSULIN NOS
     Indication: Product used for unknown indication
     Dosage: UNK
     Route: 065

REACTIONS (6)
  - Acute kidney injury [Not Recovered/Not Resolved]
  - Device related infection [Recovered/Resolved]
  - Rash maculo-papular [Recovered/Resolved]
  - Skin hyperpigmentation [Not Recovered/Not Resolved]
  - Nail bed disorder [Not Recovered/Not Resolved]
  - Hepatic function abnormal [Recovered/Resolved]

NARRATIVE: CASE EVENT DATE: 20230711
